FAERS Safety Report 10549067 (Version 2)
Quarter: 2014Q4

REPORT INFORMATION
  Report Type: Spontaneous
  Country: US (occurrence: US)
  Receive Date: 20141028
  Receipt Date: 20141203
  Transmission Date: 20150529
  Serious: Yes (Hospitalization)
  Sender: FDA-Public Use
  Company Number: US-BAYER-2014-156876

PATIENT
  Age: 25 Year
  Sex: Female
  Weight: 81.63 kg

DRUGS (1)
  1. MIRENA [Suspect]
     Active Substance: LEVONORGESTREL
     Dosage: 20 MCG/24HR, CONT
     Route: 015
     Dates: start: 20100205, end: 20111012

REACTIONS (4)
  - Uterine perforation [None]
  - Injury [None]
  - Device dislocation [None]
  - Pain [None]

NARRATIVE: CASE EVENT DATE: 2011
